FAERS Safety Report 13632277 (Version 1)
Quarter: 2017Q2

REPORT INFORMATION
  Report Type: Spontaneous
  Country: US (occurrence: US)
  Receive Date: 20170531
  Receipt Date: 20170531
  Transmission Date: 20170830
  Serious: No
  Sender: FDA-Public Use
  Company Number: US-ASTELLAS-1451208

PATIENT
  Sex: Female

DRUGS (11)
  1. XARELTO [Concomitant]
     Active Substance: RIVAROXABAN
  2. PEPCID [Concomitant]
     Active Substance: FAMOTIDINE
  3. PROPAFENONE HCL [Concomitant]
     Active Substance: PROPAFENONE HYDROCHLORIDE
  4. TARCEVA [Suspect]
     Active Substance: ERLOTINIB HYDROCHLORIDE
     Indication: LUNG NEOPLASM MALIGNANT
     Route: 048
     Dates: start: 20140425
  5. XGEVA [Concomitant]
     Active Substance: DENOSUMAB
  6. FOLIC ACID. [Concomitant]
     Active Substance: FOLIC ACID
  7. MIRALAX [Concomitant]
     Active Substance: POLYETHYLENE GLYCOL 3350
  8. ONDANSETRON [Concomitant]
     Active Substance: ONDANSETRON
  9. XANAX [Concomitant]
     Active Substance: ALPRAZOLAM
  10. FENTANYL. [Concomitant]
     Active Substance: FENTANYL
  11. DILAUDID [Concomitant]
     Active Substance: HYDROMORPHONE HYDROCHLORIDE

REACTIONS (1)
  - Diarrhoea [Unknown]
